FAERS Safety Report 15548822 (Version 1)
Quarter: 2018Q4

REPORT INFORMATION
  Report Type: Spontaneous
  Country: FR (occurrence: FR)
  Receive Date: 20181025
  Receipt Date: 20181025
  Transmission Date: 20190205
  Serious: Yes (Hospitalization)
  Sender: FDA-Public Use
  Company Number: FR-ROCHE-2204865

PATIENT
  Age: 64 Year
  Sex: Male
  Weight: 42 kg

DRUGS (3)
  1. AVASTIN [Suspect]
     Active Substance: BEVACIZUMAB
     Indication: LUNG NEOPLASM MALIGNANT
     Dosage: NP 25 MG/ML
     Route: 042
     Dates: start: 201806, end: 20180803
  2. ALIMTA [Suspect]
     Active Substance: PEMETREXED DISODIUM
     Indication: LUNG NEOPLASM MALIGNANT
     Dosage: NP
     Route: 042
     Dates: start: 201806, end: 20180803
  3. CISPLATINE MYLAN [Suspect]
     Active Substance: CISPLATIN
     Indication: LUNG NEOPLASM MALIGNANT
     Dosage: NP
     Route: 042
     Dates: start: 201806, end: 20180803

REACTIONS (2)
  - Infection [Recovered/Resolved]
  - Central venous catheter removal [Recovered/Resolved]

NARRATIVE: CASE EVENT DATE: 20180808
